FAERS Safety Report 8680971 (Version 5)
Quarter: 2012Q4

REPORT INFORMATION
  Report Type: 
  Country: JP (occurrence: JP)
  Receive Date: 20120724
  Receipt Date: 20121101
  Transmission Date: 20130627
  Serious: Yes (Death, Life-Threatening, Hospitalization, Other)
  Sender: FDA-Public Use
  Company Number: JP-PFIZER INC-2012163409

PATIENT
  Age: 64 Year
  Sex: Male
  Weight: 52 kg

DRUGS (2)
  1. TORISEL [Suspect]
     Indication: RENAL CELL CARCINOMA
     Dosage: 25 mg, UNK
     Route: 041
     Dates: start: 20120607, end: 2012
  2. DECADRON [Suspect]
     Indication: ANOREXIA
     Dosage: 1 mg, 2x/day
     Route: 048
     Dates: start: 20120517, end: 20120709

REACTIONS (6)
  - Pneumocystis jiroveci pneumonia [Fatal]
  - Pneumonia pseudomonas aeruginosa [Fatal]
  - Pancytopenia [Not Recovered/Not Resolved]
  - Aortic stenosis [Unknown]
  - Ureteral disorder [Unknown]
  - Pain [Unknown]
